FAERS Safety Report 4432415-X (Version None)
Quarter: 2004Q3

REPORT INFORMATION
  Report Type: 
  Country: None (occurrence: None)
  Receive Date: 20040825
  Receipt Date: 20040813
  Transmission Date: 20050211
  Serious: Yes (Other)
  Sender: FDA-Public Use
  Company Number: SE-GLAXOSMITHKLINE-B0343064A

PATIENT
  Age: 18 Year
  Sex: Female

DRUGS (6)
  1. LAMICTAL [Suspect]
     Indication: PERSONALITY DISORDER
     Route: 048
     Dates: start: 20040501, end: 20040610
  2. REMERON [Concomitant]
  3. CITALOPRAM [Concomitant]
  4. ESUCOS [Concomitant]
  5. STESOLID [Concomitant]
  6. IPREN [Concomitant]

REACTIONS (8)
  - C-REACTIVE PROTEIN [None]
  - C-REACTIVE PROTEIN INCREASED [None]
  - HEADACHE [None]
  - LYMPHADENOPATHY [None]
  - MUSCLE TIGHTNESS [None]
  - OROPHARYNGEAL SWELLING [None]
  - PYREXIA [None]
  - TRANSAMINASES INCREASED [None]
